FAERS Safety Report 5204851-5 (Version None)
Quarter: 2007Q1

REPORT INFORMATION
  Report Type: 
  Country: None (occurrence: None)
  Receive Date: 20070110
  Receipt Date: 20060913
  Transmission Date: 20070707
  Serious: Yes (Other)
  Sender: FDA-Public Use
  Company Number: US-BRISTOL-MYERS SQUIBB COMPANY-13470224

PATIENT
  Age: 37 Year
  Sex: Female

DRUGS (8)
  1. ABILIFY [Suspect]
     Indication: AFFECTIVE DISORDER
     Route: 048
     Dates: start: 20060803, end: 20060807
  2. SEROQUEL [Concomitant]
  3. ROZEREM [Concomitant]
  4. HYDROXYZINE [Concomitant]
  5. WELLBUTRIN [Concomitant]
  6. REGLAN [Concomitant]
  7. PREVACID [Concomitant]
  8. LISINOPRIL AND HYDROCHLOROTHIAZIDE [Concomitant]

REACTIONS (4)
  - COLD SWEAT [None]
  - LOSS OF CONSCIOUSNESS [None]
  - PYREXIA [None]
  - URTICARIA [None]
